FAERS Safety Report 18038905 (Version 2)
Quarter: 2020Q3

REPORT INFORMATION
  Report Type: Spontaneous
  Country: JP (occurrence: JP)
  Receive Date: 20200717
  Receipt Date: 20200814
  Transmission Date: 20201103
  Serious: Yes (Life-Threatening, Other)
  Sender: FDA-Public Use
  Company Number: JP-PFIZER INC-2020270329

PATIENT
  Age: 73 Year
  Sex: Male
  Weight: 50 kg

DRUGS (11)
  1. FORXIGA [Concomitant]
     Active Substance: DAPAGLIFLOZIN
     Dosage: UNK
  2. PREDNISOLONE. [Concomitant]
     Active Substance: PREDNISOLONE
     Dosage: UNK
  3. INLYTA [Suspect]
     Active Substance: AXITINIB
     Indication: RENAL CELL CARCINOMA
     Dosage: 5 MG, 2X/DAY
     Route: 048
     Dates: start: 20191105, end: 20200609
  4. NIFEDIPINE. [Concomitant]
     Active Substance: NIFEDIPINE
     Dosage: UNK
  5. CANDESARTAN. [Concomitant]
     Active Substance: CANDESARTAN
     Dosage: UNK
  6. ONGLYZA [Concomitant]
     Active Substance: SAXAGLIPTIN HYDROCHLORIDE
     Dosage: UNK
  7. REBAMIPIDE [Concomitant]
     Active Substance: REBAMIPIDE
     Dosage: UNK
  8. LANSOPRAZOLE. [Concomitant]
     Active Substance: LANSOPRAZOLE
     Dosage: UNK
  9. PICOSULFATE NA [Concomitant]
     Active Substance: SODIUM PICOSULFATE
     Dosage: UNK
  10. PREDONINE [Concomitant]
     Active Substance: PREDNISOLONE
     Dosage: UNK
  11. AZUNOL GARGLE LIQUID [Concomitant]
     Dosage: UNK, 1X/DAY

REACTIONS (5)
  - Acute myocardial infarction [Recovered/Resolved]
  - Pneumothorax [Unknown]
  - Prinzmetal angina [Recovered/Resolved]
  - Enterocolitis haemorrhagic [Recovered/Resolved]
  - Blood pressure increased [Unknown]

NARRATIVE: CASE EVENT DATE: 20200609
